FAERS Safety Report 7271425-4 (Version None)
Quarter: 2011Q1

REPORT INFORMATION
  Report Type: 
  Country: None (occurrence: None)
  Receive Date: 20110203
  Receipt Date: 20110120
  Transmission Date: 20110831
  Serious: No
  Sender: FDA-Public Use
  Company Number: US-BIOGENIDEC-2011BI003172

PATIENT
  Age: 48 Year
  Sex: Male

DRUGS (3)
  1. AVONEX [Suspect]
     Route: 030
     Dates: start: 20070419
  2. AVONEX [Suspect]
     Route: 030
     Dates: start: 19990301
  3. AVONEX [Suspect]
     Indication: MULTIPLE SCLEROSIS
     Route: 030
     Dates: start: 20100711

REACTIONS (3)
  - IMPAIRED HEALING [None]
  - BLISTER [None]
  - RASH [None]
